FAERS Safety Report 13289711 (Version 2)
Quarter: 2017Q1

REPORT INFORMATION
  Report Type: Spontaneous
  Country: IT (occurrence: IT)
  Receive Date: 20170302
  Receipt Date: 20170320
  Transmission Date: 20170428
  Serious: Yes (Life-Threatening)
  Sender: FDA-Public Use
  Company Number: IT-ELI_LILLY_AND_COMPANY-IT201703000142

PATIENT
  Sex: Male

DRUGS (3)
  1. SOLDESAM [Concomitant]
     Active Substance: DEXAMETHASONE
     Dosage: UNK UNK, UNKNOWN
     Route: 030
     Dates: start: 20170130, end: 20170210
  2. ERBITUX [Suspect]
     Active Substance: CETUXIMAB
     Indication: PHARYNGEAL CANCER
     Dosage: UNK UNK, UNKNOWN
     Route: 042
  3. FARGANESSE [Concomitant]
     Dosage: UNK UNK, UNKNOWN
     Route: 042

REACTIONS (6)
  - Cough [Recovered/Resolved with Sequelae]
  - Respiratory failure [Recovered/Resolved with Sequelae]
  - Face oedema [Recovered/Resolved with Sequelae]
  - Pruritus [Recovered/Resolved with Sequelae]
  - Periorbital oedema [Recovered/Resolved with Sequelae]
  - Rash maculo-papular [Recovered/Resolved with Sequelae]

NARRATIVE: CASE EVENT DATE: 20170210
